FAERS Safety Report 12569899 (Version 1)
Quarter: 2016Q3

REPORT INFORMATION
  Report Type: Spontaneous
  Country: US (occurrence: US)
  Receive Date: 20160719
  Receipt Date: 20160719
  Transmission Date: 20161109
  Serious: Yes (Other)
  Sender: FDA-Public Use
  Company Number: US-GLAXOSMITHKLINE-US2016GSK099574

PATIENT
  Sex: Female

DRUGS (1)
  1. TANZEUM [Suspect]
     Active Substance: ALBIGLUTIDE
     Indication: PRODUCT USED FOR UNKNOWN INDICATION

REACTIONS (7)
  - Device use error [Unknown]
  - Wrong technique in product usage process [Unknown]
  - Wrist surgery [Unknown]
  - Accidental exposure to product [Unknown]
  - Underdose [Unknown]
  - Device difficult to use [Unknown]
  - Device leakage [Unknown]
